FAERS Safety Report 7121006-8 (Version None)
Quarter: 2010Q4

REPORT INFORMATION
  Report Type: 
  Country: None (occurrence: None)
  Receive Date: 20101124
  Receipt Date: 20100316
  Transmission Date: 20110411
  Serious: No
  Sender: FDA-Public Use
  Company Number: US-PFIZER INC-2010012736

PATIENT
  Sex: Male
  Weight: 86.6 kg

DRUGS (10)
  1. TIKOSYN [Suspect]
     Indication: ATRIAL FIBRILLATION
     Dosage: 500 UG, 2X/DAY
     Route: 048
     Dates: start: 20061101
  2. NIASPAN [Concomitant]
     Dosage: 500 MG, 3X/DAY
  3. QUINAPRIL [Concomitant]
     Dosage: 20 MG, DAILY
  4. FINASTERIDE [Concomitant]
     Indication: PROSTATIC DISORDER
     Dosage: 5 MG, DAILY
  5. ACETYLSALICYLIC ACID [Concomitant]
     Dosage: 325 MG, DAILY
  6. LEVOTHROID [Concomitant]
     Dosage: 100 UG, DAILY
  7. METOPROLOL [Concomitant]
     Dosage: 50 MG, UNK
  8. CITRACAL [Concomitant]
     Dosage: 250/125 IU, UNK
  9. WARFARIN [Concomitant]
     Dosage: 2.5 MG, UNK
  10. SIMVASTATIN [Concomitant]
     Dosage: 40 MG, UNK

REACTIONS (4)
  - DIZZINESS [None]
  - DRUG DOSE OMISSION [None]
  - FATIGUE [None]
  - HEART RATE INCREASED [None]
